FAERS Safety Report 13006735 (Version 2)
Quarter: 2017Q1

REPORT INFORMATION
  Report Type: Spontaneous
  Country: AT (occurrence: AT)
  Receive Date: 20161207
  Receipt Date: 20170127
  Transmission Date: 20170428
  Serious: Yes (Other)
  Sender: FDA-Public Use
  Company Number: AT-AMGEN-AUTSP2016169819

PATIENT
  Age: 60 Year
  Sex: Male
  Weight: 86 kg

DRUGS (31)
  1. 5-FU [Concomitant]
     Active Substance: FLUOROURACIL
     Indication: ADENOCARCINOMA
     Dosage: UNK, 50 NACL
     Route: 040
     Dates: start: 20160907
  2. 5-FU [Concomitant]
     Active Substance: FLUOROURACIL
     Dosage: UNK, CADD PUMP 100ML 22 H
     Dates: start: 20161206
  3. RECONVAL K1 [Concomitant]
     Dosage: UNK
  4. 5-FU [Concomitant]
     Active Substance: FLUOROURACIL
     Dosage: UNK, CADD PUMP 100ML 22 H
     Route: 042
     Dates: start: 20161103
  5. 5-FU [Concomitant]
     Active Substance: FLUOROURACIL
     Dosage: UNK, 50 NACL
     Route: 040
     Dates: start: 20170111
  6. OXALIPLATIN. [Concomitant]
     Active Substance: OXALIPLATIN
     Indication: ADENOCARCINOMA
     Dosage: UNK 500 GLUCOSE 5% 2H
     Route: 042
  7. OXALIPLATIN. [Concomitant]
     Active Substance: OXALIPLATIN
     Dosage: UNK, 500 GLUCOSE 5% 2H
     Dates: start: 20160907
  8. ZOFRAN [Concomitant]
     Active Substance: ONDANSETRON HYDROCHLORIDE
     Dosage: 8 MG, 1/2 HR BEFORE CHEMOTHERAPY
     Route: 042
  9. DIBONDRIN [Concomitant]
     Active Substance: DIPHENHYDRAMINE HYDROCHLORIDE
     Dosage: UNK
  10. LEUCOVORIN. [Concomitant]
     Active Substance: LEUCOVORIN
     Indication: ADENOCARCINOMA
     Dosage: UNK WITH 250 NACL 0.9
     Route: 042
     Dates: start: 20160907
  11. LEUCOVORIN. [Concomitant]
     Active Substance: LEUCOVORIN
     Dosage: UNK, WITH 250 NACL 0.9
     Dates: start: 20161011
  12. LEUCOVORIN. [Concomitant]
     Active Substance: LEUCOVORIN
     Dosage: UNK, WITH 250 NACL 0.9
     Dates: start: 20161206
  13. LEUCOVORIN. [Concomitant]
     Active Substance: LEUCOVORIN
     Dosage: UNK, WITH 250 NACL 0.9
     Dates: start: 20160927
  14. 5-FU [Concomitant]
     Active Substance: FLUOROURACIL
     Dosage: UNK, 50 NACL
     Route: 040
     Dates: start: 20160927
  15. 5-FU [Concomitant]
     Active Substance: FLUOROURACIL
     Dosage: UNK, 50 NACL
     Route: 040
     Dates: start: 20161117
  16. OXALIPLATIN. [Concomitant]
     Active Substance: OXALIPLATIN
     Dosage: UNK, 500 GLUCOSE 5% 2H
     Route: 042
     Dates: start: 20161011
  17. DEXA [Concomitant]
     Active Substance: DEXAMETHASONE
     Dosage: 8 MG, 1/2 HR BEFORE CHEMOTHERAPY
     Route: 042
  18. DOXYCYCLINE. [Concomitant]
     Active Substance: DOXYCYCLINE
     Dosage: UNK
     Dates: start: 20161104
  19. FORTECORTIN [Concomitant]
     Active Substance: DEXAMETHASONE
     Dosage: 8 MG P.O, UNK
  20. LEUCOVORIN. [Concomitant]
     Active Substance: LEUCOVORIN
     Dosage: UNK, WITH 250 NACL 0.9
     Dates: start: 20160927
  21. LEUCOVORIN. [Concomitant]
     Active Substance: LEUCOVORIN
     Dosage: UNK, WITH 250 NACL 0.9
     Dates: start: 20161103
  22. 5-FU [Concomitant]
     Active Substance: FLUOROURACIL
     Dosage: UNK, 50 NACL
     Route: 040
     Dates: start: 20161206
  23. OXALIPLATIN. [Concomitant]
     Active Substance: OXALIPLATIN
     Dosage: UNK, 500 GLUCOSE 5% 2H
     Route: 042
     Dates: start: 20161103
  24. OXALIPLATIN. [Concomitant]
     Active Substance: OXALIPLATIN
     Dosage: UNK, 500 GLUCOSE 5% 2H
     Route: 042
     Dates: start: 20161117
  25. 5-FU [Concomitant]
     Active Substance: FLUOROURACIL
     Dosage: UNK, CADD PUMP 100ML 22 H
     Dates: start: 20160927
  26. OXALIPLATIN. [Concomitant]
     Active Substance: OXALIPLATIN
     Dosage: UNK, 500 GLUCOSE 5% 2H
     Route: 042
     Dates: start: 20160927
  27. VECTIBIX [Suspect]
     Active Substance: PANITUMUMAB
     Indication: ADENOCARCINOMA
     Dosage: 6 MG/KG BODY WEIGHT, UNK
     Route: 065
     Dates: start: 20160719
  28. VECTIBIX [Suspect]
     Active Substance: PANITUMUMAB
     Dosage: UNK
     Route: 065
  29. 5-FU [Concomitant]
     Active Substance: FLUOROURACIL
     Dosage: UNK, 50 NACL
     Route: 040
     Dates: start: 20161103
  30. 5-FU [Concomitant]
     Active Substance: FLUOROURACIL
     Dosage: UNK, CADD PUMP 100ML 22 H
     Route: 042
     Dates: start: 20161117
  31. ZOFRAN [Concomitant]
     Active Substance: ONDANSETRON HYDROCHLORIDE
     Dosage: 8 MG, QD (1-0-0 D3, THEN IF NEEDED)

REACTIONS (3)
  - Skin reaction [Unknown]
  - Skin toxicity [Unknown]
  - Rash [Recovered/Resolved]

NARRATIVE: CASE EVENT DATE: 2016
